FAERS Safety Report 15466679 (Version 1)
Quarter: 2018Q4

REPORT INFORMATION
  Report Type: Report from Study
  Country: None (occurrence: CR)
  Receive Date: 20181005
  Receipt Date: 20181005
  Transmission Date: 20190204
  Serious: Yes (Other)
  Sender: FDA-Public Use
  Company Number: CR-ABBVIE-18K-039-2508706-00

PATIENT
  Sex: Female
  Weight: 109 kg

DRUGS (1)
  1. HUMIRA [Suspect]
     Active Substance: ADALIMUMAB
     Indication: PSORIASIS
     Route: 058
     Dates: start: 20161122

REACTIONS (7)
  - Dizziness [Recovering/Resolving]
  - Asthenia [Recovering/Resolving]
  - Pulmonary pain [Recovering/Resolving]
  - Syncope [Recovering/Resolving]
  - Blindness transient [Recovering/Resolving]
  - Abdominal pain upper [Recovering/Resolving]
  - Hyperhidrosis [Recovering/Resolving]

NARRATIVE: CASE EVENT DATE: 2018
